FAERS Safety Report 9072416 (Version 2)
Quarter: 2013Q1

REPORT INFORMATION
  Report Type: Spontaneous
  Country: US (occurrence: US)
  Receive Date: 20130207
  Receipt Date: 20130304
  Transmission Date: 20140127
  Serious: Yes (Other)
  Sender: FDA-Public Use
  Company Number: US-PFIZER INC-2013051386

PATIENT
  Age: 66 Year
  Sex: Female

DRUGS (16)
  1. CHANTIX [Suspect]
     Indication: SMOKING CESSATION THERAPY
     Dosage: 0.5 MG, UNK
     Route: 048
     Dates: start: 20130204, end: 20130206
  2. LASIX [Concomitant]
     Dosage: 40 MG, 1X/DAY
     Route: 048
  3. OMEPRAZOLE [Concomitant]
     Dosage: 20 MG, 1X/DAY
     Route: 048
  4. LISINOPRIL [Concomitant]
     Dosage: 20 MG, 2X/DAY
     Route: 048
  5. HCTZ [Concomitant]
     Dosage: 25 MG, 1X/DAY
     Route: 048
  6. SIMVASTATIN [Concomitant]
     Dosage: 40 MG, 1X/DAY, EVERY EVENING
     Route: 048
  7. ASPIRIN [Concomitant]
     Dosage: 81 MG, 1X/DAY
     Route: 048
  8. COMBIVENT [Concomitant]
     Dosage: 2 PUFFS, 4X/DAY
  9. FLONASE [Concomitant]
     Dosage: 1 PUFF, DAILY
     Route: 045
     Dates: start: 20130124
  10. GUAIFENESIN [Concomitant]
     Dosage: 1000 MG, 2X/DAY
     Route: 048
     Dates: start: 20121224
  11. NIACIN [Concomitant]
     Dosage: 500 MG, 2X/DAY
     Route: 048
  12. CALCIUM WITH VITAMIN D [Concomitant]
     Dosage: 1 DAILY
     Route: 048
  13. GARLIC [Concomitant]
     Dosage: 400 MG, 2X/DAY
     Route: 048
  14. VITAMIN C AND E [Concomitant]
     Dosage: UNK, DAILY
     Route: 048
  15. ALBUTEROL [Concomitant]
     Dosage: UNK, EVERY 6 HOURS PRN
     Route: 055
  16. FIBER [Concomitant]
     Dosage: 1 DF, DAILY
     Route: 048

REACTIONS (2)
  - Chronic obstructive pulmonary disease [Unknown]
  - Dyspnoea [Recovered/Resolved]
